FAERS Safety Report 4608045-3 (Version None)
Quarter: 2005Q1

REPORT INFORMATION
  Report Type: 
  Country: None (occurrence: None)
  Receive Date: 20050314
  Receipt Date: 20050308
  Transmission Date: 20050727
  Serious: Yes (Hospitalization)
  Sender: FDA-Public Use
  Company Number: GB-MERCK-0503GBR00084

PATIENT
  Age: 36 Year
  Sex: Female
  Weight: 76 kg

DRUGS (4)
  1. DECADRON [Suspect]
     Indication: PROPHYLAXIS
     Route: 048
     Dates: start: 20040511, end: 20040818
  2. PROGESTERONE [Suspect]
     Indication: PROPHYLAXIS
     Route: 067
     Dates: start: 20040511, end: 20040818
  3. ASPIRIN [Concomitant]
     Indication: PROPHYLAXIS
     Route: 048
     Dates: start: 20040511, end: 20040518
  4. ENOXAPARIN SODIUM [Concomitant]
     Indication: PROPHYLAXIS
     Route: 058
     Dates: start: 20040511, end: 20040818

REACTIONS (2)
  - DRUG EXPOSURE DURING PREGNANCY [None]
  - POSTPARTUM HAEMORRHAGE [None]
